FAERS Safety Report 7123601-9 (Version None)
Quarter: 2010Q4

REPORT INFORMATION
  Report Type: 
  Country: None (occurrence: None)
  Receive Date: 20101125
  Receipt Date: 20101122
  Transmission Date: 20110411
  Serious: Yes (Hospitalization, Other)
  Sender: FDA-Public Use
  Company Number: RU-BRISTOL-MYERS SQUIBB COMPANY-15398688

PATIENT
  Age: 33 Year
  Sex: Female

DRUGS (3)
  1. ARIPIPRAZOLE [Suspect]
     Indication: SCHIZOPHRENIA
     Dosage: 1 DF=5-10MG STARTED MORE THAN 2 YEARS
  2. RELANIUM [Suspect]
  3. SERTRALINE HYDROCHLORIDE [Suspect]

REACTIONS (9)
  - CAESAREAN SECTION [None]
  - DISSEMINATED INTRAVASCULAR COAGULATION [None]
  - DRUG EXPOSURE DURING PREGNANCY [None]
  - IMPAIRED HEALING [None]
  - MENSTRUATION DELAYED [None]
  - NORMAL NEWBORN [None]
  - PRE-ECLAMPSIA [None]
  - PREGNANCY [None]
  - PREMATURE LABOUR [None]
